FAERS Safety Report 9381618 (Version 1)
Quarter: 2013Q3

REPORT INFORMATION
  Report Type: Spontaneous
  Country: US (occurrence: US)
  Receive Date: 20130703
  Receipt Date: 20130703
  Transmission Date: 20140515
  Serious: No
  Sender: FDA-Public Use
  Company Number: US-BAYER-2013-081136

PATIENT
  Sex: Female

DRUGS (1)
  1. ALEVE CAPLET [Suspect]
     Indication: INFLAMMATORY PAIN
     Dosage: UNK, DF,UNK
     Route: 048

REACTIONS (2)
  - Incorrect dose administered [None]
  - Off label use [None]
